FAERS Safety Report 6314858-2 (Version None)
Quarter: 2009Q3

REPORT INFORMATION
  Report Type: 
  Country: None (occurrence: None)
  Receive Date: 20090819
  Receipt Date: 20090806
  Transmission Date: 20100115
  Serious: Yes (Death)
  Sender: FDA-Public Use
  Company Number: US-PFIZER INC-2009221087

PATIENT
  Sex: Male

DRUGS (19)
  1. SUTENT [Suspect]
     Indication: METASTATIC RENAL CELL CARCINOMA
     Dosage: 50 MG, DAILY, EVERY DAY
     Route: 048
     Dates: start: 20090201, end: 20090501
  2. FUROSEMIDE [Concomitant]
     Dosage: UNK
  3. NORCO [Concomitant]
     Dosage: UNK
  4. DURAGESIC-100 [Concomitant]
     Dosage: UNK
  5. MORPHINE SULFATE [Concomitant]
     Dosage: UNK
  6. METHADONE [Concomitant]
     Dosage: UNK
  7. KYTRIL [Concomitant]
     Dosage: UNK
  8. ATIVAN [Concomitant]
     Dosage: UNK
  9. CIPROFLOXACIN [Concomitant]
     Dosage: UNK
  10. DEXAMETHASONE [Concomitant]
     Dosage: UNK
  11. DEPAKOTE [Concomitant]
     Dosage: UNK
  12. SENNA [Concomitant]
     Dosage: UNK
  13. ALLOPURINOL [Concomitant]
     Dosage: UNK
  14. DIFLUCAN [Concomitant]
     Dosage: UNK
  15. MIRALAX [Concomitant]
     Dosage: UNK
  16. NYSTATIN [Concomitant]
     Dosage: UNK
  17. GABAPENTIN [Concomitant]
     Dosage: UNK
  18. CLONIDINE [Concomitant]
     Dosage: UNK
  19. ATROPINE [Concomitant]
     Dosage: UNK

REACTIONS (2)
  - DISEASE PROGRESSION [None]
  - METASTATIC RENAL CELL CARCINOMA [None]
